FAERS Safety Report 8840074 (Version 7)
Quarter: 2013Q3

REPORT INFORMATION
  Report Type: Spontaneous
  Country: US (occurrence: US)
  Receive Date: 20121015
  Receipt Date: 20130926
  Transmission Date: 20140515
  Serious: Yes (Death, Hospitalization)
  Sender: FDA-Public Use
  Company Number: US-B.I. PHARMACEUTICALS,INC./RIDGEFIELD-2012-BP-25385BP

PATIENT
  Age: 75 Year
  Sex: Male
  Weight: 106.59 kg

DRUGS (13)
  1. PRADAXA [Suspect]
     Indication: ATRIAL FIBRILLATION
     Dosage: 300 MG
     Route: 048
     Dates: start: 20120302, end: 20120311
  2. PRADAXA [Suspect]
     Indication: ANTICOAGULANT THERAPY
     Dates: start: 20120406, end: 20120411
  3. HUMALOG [Concomitant]
  4. MAXZIDE [Concomitant]
  5. GLYBURIDE [Concomitant]
     Dosage: 12 MG
  6. METOPROLOL [Concomitant]
     Dosage: 100 MG
  7. ENALAPRIL [Concomitant]
     Dosage: 10 MG
  8. TYLENOL [Concomitant]
  9. MULTIVITAMIN [Concomitant]
  10. FLOMAX [Concomitant]
     Dosage: 0.8 MG
  11. PROTONIX [Concomitant]
  12. SIMVASTATIN [Concomitant]
  13. PRAVASTATIN [Concomitant]

REACTIONS (7)
  - Gastrointestinal haemorrhage [Fatal]
  - Ulcer haemorrhage [Fatal]
  - Respiratory failure [Recovered/Resolved]
  - Gastrointestinal haemorrhage [Recovered/Resolved]
  - Haemoptysis [Not Recovered/Not Resolved]
  - Haemorrhagic anaemia [Unknown]
  - Dieulafoy^s vascular malformation [Unknown]
